FAERS Safety Report 17495089 (Version 1)
Quarter: 2020Q1

REPORT INFORMATION
  Report Type: Spontaneous
  Country: FR (occurrence: FR)
  Receive Date: 20200304
  Receipt Date: 20200304
  Transmission Date: 20200409
  Serious: Yes (Hospitalization, Other)
  Sender: FDA-Public Use
  Company Number: FR-PFIZER INC-2020090092

PATIENT
  Age: 74 Year
  Sex: Male
  Weight: 73 kg

DRUGS (7)
  1. OXALIPLATIN. [Suspect]
     Active Substance: OXALIPLATIN
     Indication: ADENOCARCINOMA OF COLON
     Dosage: UNK
     Route: 042
     Dates: start: 20180930, end: 20190221
  2. AVASTIN [Suspect]
     Active Substance: BEVACIZUMAB
     Indication: ADENOCARCINOMA OF COLON
     Dosage: UNK
     Route: 042
     Dates: start: 20180930, end: 20190221
  3. NEO CODION [Concomitant]
     Active Substance: CODEINE\GRINDELIA HIRSUTULA WHOLE\SULFOGAIACOL
     Dosage: UNK
     Route: 048
  4. BINOCRIT [Concomitant]
     Active Substance: ERYTHROPOIETIN
     Dosage: UNK
     Route: 048
  5. FLUOROURACIL. [Suspect]
     Active Substance: FLUOROURACIL
     Indication: ADENOCARCINOMA OF COLON
     Dosage: UNK
     Route: 042
     Dates: start: 20180930
  6. IMODIUM [Concomitant]
     Active Substance: LOPERAMIDE HYDROCHLORIDE
     Dosage: UNK
     Route: 048
  7. SMECTA [Concomitant]
     Active Substance: MONTMORILLONITE
     Dosage: UNK
     Route: 048

REACTIONS (5)
  - Pleural effusion [Recovering/Resolving]
  - Cardiac failure [Recovering/Resolving]
  - Ventricular hypertrophy [Recovering/Resolving]
  - Inferior vena cava dilatation [Recovering/Resolving]
  - Right ventricular dilatation [Recovering/Resolving]

NARRATIVE: CASE EVENT DATE: 20190315
